FAERS Safety Report 18042375 (Version 1)
Quarter: 2020Q3

REPORT INFORMATION
  Report Type: Spontaneous
  Country: US (occurrence: US)
  Receive Date: 20200720
  Receipt Date: 20200720
  Transmission Date: 20201103
  Serious: No
  Sender: FDA-Public Use
  Company Number: US-GLENMARK PHARMACEUTICALS-2020GMK048491

PATIENT

DRUGS (2)
  1. RANOLAZINE EXTENDED?RELEASE TABLETS, 500 MG [Suspect]
     Active Substance: RANOLAZINE
     Indication: CHEST DISCOMFORT
  2. RANOLAZINE EXTENDED?RELEASE TABLETS, 500 MG [Suspect]
     Active Substance: RANOLAZINE
     Indication: ANGINA PECTORIS
     Dosage: 500 MILLIGRAM, BID
     Route: 048

REACTIONS (3)
  - Rash [Not Recovered/Not Resolved]
  - Scratch [Not Recovered/Not Resolved]
  - Hypersensitivity [Not Recovered/Not Resolved]
